FAERS Safety Report 4293114-0 (Version None)
Quarter: 2004Q1

REPORT INFORMATION
  Report Type: 
  Country: None (occurrence: None)
  Receive Date: 20040212
  Receipt Date: 20030312
  Transmission Date: 20041129
  Serious: No
  Sender: FDA-Public Use
  Company Number: US-GLAXOSMITHKLINE-A0400144A

PATIENT
  Age: 41 Year
  Sex: Male

DRUGS (3)
  1. PAXIL [Suspect]
     Route: 048
     Dates: start: 20020308
  2. ACIPHEX [Concomitant]
     Route: 065
  3. VALERIAN ROOT [Concomitant]
     Route: 065

REACTIONS (9)
  - ANOREXIA [None]
  - ANXIETY [None]
  - DEPERSONALISATION [None]
  - ELECTRIC SHOCK [None]
  - FATIGUE [None]
  - FEELING ABNORMAL [None]
  - FEELING HOT [None]
  - HYPERHIDROSIS [None]
  - NERVOUSNESS [None]
